FAERS Safety Report 25189339 (Version 1)
Quarter: 2025Q2

REPORT INFORMATION
  Report Type: Spontaneous
  Country: US (occurrence: US)
  Receive Date: 20250411
  Receipt Date: 20250411
  Transmission Date: 20250716
  Serious: Yes (Other)
  Sender: TEVA
  Company Number: US-TEVA-VS-3319492

PATIENT
  Age: 54 Year
  Sex: Female

DRUGS (1)
  1. QVAR REDIHALER [Suspect]
     Active Substance: BECLOMETHASONE DIPROPIONATE
     Indication: Product used for unknown indication
     Route: 055

REACTIONS (5)
  - Chest discomfort [Unknown]
  - Drug dose omission by device [Unknown]
  - Device malfunction [Unknown]
  - Dyspnoea [Unknown]
  - Device defective [Unknown]
